FAERS Safety Report 6259946-4 (Version None)
Quarter: 2009Q3

REPORT INFORMATION
  Report Type: 
  Country: None (occurrence: None)
  Receive Date: 20090706
  Receipt Date: 20090706
  Transmission Date: 20100115
  Serious: Yes (Life-Threatening)
  Sender: FDA-Public Use
  Company Number: None

PATIENT
  Age: 37 Year
  Sex: Male
  Weight: 77.1115 kg

DRUGS (1)
  1. REGLAN [Suspect]
     Indication: HIATUS HERNIA
     Dosage: 2 TABLETS 4 TIMES A DAY PO
     Route: 048
     Dates: start: 20060101, end: 20061115

REACTIONS (5)
  - ANXIETY [None]
  - INSOMNIA [None]
  - NIGHTMARE [None]
  - SUICIDAL IDEATION [None]
  - SUICIDE ATTEMPT [None]
